FAERS Safety Report 6499591-9 (Version None)
Quarter: 2009Q4

REPORT INFORMATION
  Report Type: 
  Country: None (occurrence: None)
  Receive Date: 20091209
  Receipt Date: 20090107
  Transmission Date: 20100525
  Serious: No
  Sender: FDA-Public Use
  Company Number: M2009-001

PATIENT

DRUGS (1)
  1. TIMOTHY STD GLY 100,000 BAU HOLLIST-STIER [Suspect]
     Indication: ANTIALLERGIC THERAPY

REACTIONS (1)
  - PRURITUS [None]
